FAERS Safety Report 9944238 (Version 1)
Quarter: 2014Q1

REPORT INFORMATION
  Report Type: Report from Study
  Country: US (occurrence: US)
  Receive Date: 20140303
  Receipt Date: 20140303
  Transmission Date: 20141002
  Serious: No
  Sender: FDA-Public Use
  Company Number: US-ABBVIE-13P-163-1048466-00

PATIENT
  Age: 57 Year
  Sex: Female

DRUGS (4)
  1. HUMIRA [Suspect]
     Indication: PSORIASIS
     Dates: start: 20130130
  2. HUMIRA [Suspect]
     Dates: start: 20130207
  3. TUMS [Concomitant]
     Indication: MINERAL SUPPLEMENTATION
  4. CLOBETASOL PROPRIONATE [Concomitant]
     Indication: PSORIASIS
     Dosage: AS NEEDED

REACTIONS (6)
  - Device malfunction [Recovered/Resolved]
  - Wrong technique in drug usage process [Recovered/Resolved]
  - Incorrect dose administered [Recovered/Resolved]
  - Wrong technique in drug usage process [Recovered/Resolved]
  - Injection site pain [Recovered/Resolved]
  - Injection site pain [Recovered/Resolved]
